FAERS Safety Report 5564553-2 (Version None)
Quarter: 2007Q4

REPORT INFORMATION
  Report Type: 
  Country: None (occurrence: None)
  Receive Date: 20071218
  Receipt Date: 20071210
  Transmission Date: 20080405
  Serious: Yes (Death, Other)
  Sender: FDA-Public Use
  Company Number: JP-JNJFOC-20071202887

PATIENT
  Sex: Female
  Weight: 80 kg

DRUGS (21)
  1. REMICADE [Suspect]
     Route: 042
  2. REMICADE [Suspect]
     Route: 042
  3. REMICADE [Suspect]
     Indication: CROHN'S DISEASE
     Route: 042
  4. PENTASA [Concomitant]
     Indication: CROHN'S DISEASE
     Route: 048
  5. LAC B [Concomitant]
     Indication: CROHN'S DISEASE
     Route: 048
  6. PREDONINE [Concomitant]
     Indication: CROHN'S DISEASE
     Route: 048
  7. MARZULENE [Concomitant]
     Indication: GASTRITIS
     Route: 048
  8. HANGE-SHASHIN-TO [Concomitant]
     Indication: DIARRHOEA
     Route: 048
  9. TERRANAS [Concomitant]
     Indication: MIGRAINE
     Route: 048
  10. FERROMIA [Concomitant]
     Indication: ANAEMIA
     Route: 048
  11. FAMOTIDINE [Concomitant]
     Indication: GASTRITIS
     Route: 048
  12. WARFARIN SODIUM [Concomitant]
     Indication: THROMBOPHLEBITIS
     Route: 048
  13. SIMVASTATIN [Concomitant]
     Indication: HYPERLIPIDAEMIA
     Route: 048
  14. IMURAN [Concomitant]
     Indication: CROHN'S DISEASE
     Route: 048
  15. RABEPRAZOLE SODIUM [Concomitant]
     Route: 048
  16. VOLTAREN [Concomitant]
     Indication: HEADACHE
     Route: 048
  17. DEPAKENE [Concomitant]
     Route: 048
  18. HALICON [Concomitant]
     Route: 048
  19. VEGETAMIN [Concomitant]
     Route: 048
  20. ROHYPNOL [Concomitant]
     Route: 048
  21. BIO-THREE [Concomitant]
     Route: 048

REACTIONS (2)
  - ASTHMA [None]
  - COMPLETED SUICIDE [None]
